FAERS Safety Report 23251638 (Version 1)
Quarter: 2023Q4

REPORT INFORMATION
  Report Type: Spontaneous
  Country: ES (occurrence: ES)
  Receive Date: 20231201
  Receipt Date: 20231201
  Transmission Date: 20240110
  Serious: Yes (Other)
  Sender: FDA-Public Use
  Company Number: ES-ACORDA-ACO_176667_2023

PATIENT

DRUGS (3)
  1. INBRIJA [Suspect]
     Active Substance: LEVODOPA
     Indication: Parkinson^s disease
     Dosage: 2 DOSAGE FORM, QD
     Dates: start: 202307, end: 20231014
  2. INBRIJA [Suspect]
     Active Substance: LEVODOPA
     Indication: On and off phenomenon
  3. LEVODOPA [Suspect]
     Active Substance: LEVODOPA
     Indication: Parkinson^s disease
     Dosage: PUMP CONNECTED FROM 8AM TO 11PM
     Route: 065
     Dates: start: 2013

REACTIONS (8)
  - Paralysis [Unknown]
  - Neuralgia [Not Recovered/Not Resolved]
  - Product use issue [Unknown]
  - Movement disorder [Unknown]
  - Venous pressure abnormal [Not Recovered/Not Resolved]
  - Pain [Unknown]
  - Unevaluable event [Unknown]
  - Asthenia [Not Recovered/Not Resolved]

NARRATIVE: CASE EVENT DATE: 20231001
